FAERS Safety Report 6877424-6 (Version None)
Quarter: 2010Q3

REPORT INFORMATION
  Report Type: 
  Country: None (occurrence: None)
  Receive Date: 20100727
  Receipt Date: 20100202
  Transmission Date: 20110219
  Serious: No
  Sender: FDA-Public Use
  Company Number: US-ABBOTT-10P-163-0624287-00

PATIENT
  Sex: Female
  Weight: 86.26 kg

DRUGS (2)
  1. SYNTHROID [Suspect]
     Indication: AUTOIMMUNE THYROIDITIS
     Dosage: ABOUT 1/4 OF A 100 MCG TABLET
     Dates: start: 20080101
  2. METHADONE HCL [Concomitant]
     Indication: TRIGEMINAL NEURALGIA

REACTIONS (2)
  - BLOOD PRESSURE INCREASED [None]
  - PALPITATIONS [None]
